FAERS Safety Report 7622918-9 (Version None)
Quarter: 2011Q3

REPORT INFORMATION
  Report Type: 
  Country: None (occurrence: None)
  Receive Date: 20110720
  Receipt Date: 20110711
  Transmission Date: 20111222
  Serious: Yes (Hospitalization, Other)
  Sender: FDA-Public Use
  Company Number: US-BAYER-200940126NA

PATIENT
  Age: 27 Year
  Sex: Male
  Weight: 99 kg

DRUGS (25)
  1. TRASYLOL [Suspect]
     Indication: AORTIC SURGERY
     Dosage: 200 CC PUMP PRIME
     Route: 042
     Dates: start: 20020307, end: 20020308
  2. TRASYLOL [Suspect]
  3. VERSED [Concomitant]
     Dosage: 7 TOTAL
     Route: 042
     Dates: start: 20020307
  4. SODIUM BICARBONATE [Concomitant]
     Dosage: 3 AMPULES TOTAL
     Route: 042
     Dates: start: 20020307
  5. PLATELETS [Concomitant]
     Dosage: 7 U, ONCE
     Route: 042
     Dates: start: 20020307
  6. BUMEX [Concomitant]
     Dosage: UNK
     Route: 042
     Dates: start: 20020308, end: 20020310
  7. TRASYLOL [Suspect]
  8. RED BLOOD CELLS [Concomitant]
     Dosage: 9 U, ONCE
     Route: 042
     Dates: start: 20020307
  9. LEVOPHED [Concomitant]
     Dosage: TITRATE
     Route: 042
     Dates: start: 20020307
  10. CALCIUM CHLORIDE [Concomitant]
     Dosage: 4 GRAMS
     Route: 042
     Dates: start: 20020307
  11. FRESH FROZEN PLASMA [Concomitant]
     Dosage: 23 U, ONCE
     Route: 042
     Dates: start: 20020307
  12. LASIX [Concomitant]
     Indication: CARDIAC FAILURE ACUTE
     Dosage: 120MG TOTAL
     Route: 042
     Dates: start: 20020307
  13. CRYOPRECIPITATES [Concomitant]
     Dosage: 40 U, ONCE
     Route: 042
     Dates: start: 20020307
  14. PROTAMINE SULFATE [Concomitant]
     Dosage: 550 MG,TOTAL
  15. CARDIOPLEGIA [Concomitant]
     Indication: CARDIOPULMONARY BYPASS
     Dosage: 2700 ML, UNK
  16. HEPARIN [Concomitant]
     Dosage: 7000 UNITS
     Route: 042
     Dates: start: 20020307
  17. PHENYLEPHRINE HCL [Concomitant]
     Dosage: AS NEEDED
     Route: 042
     Dates: start: 20020307
  18. SODIUM BICARBONATE [Concomitant]
     Dosage: 75 MILLIEQUIVALENTS
     Route: 042
     Dates: start: 20020307
  19. ZINACEF [Concomitant]
     Dosage: 1.5 GRAMS
     Route: 042
     Dates: start: 20020307
  20. SODIUM BICARBONATE [Concomitant]
     Dosage: 350 MILLIEQUIVALENTS
     Route: 042
     Dates: start: 20020307
  21. TRASYLOL [Suspect]
  22. AMOXICILLIN [Concomitant]
     Indication: PNEUMONIA
  23. DIURIL [Concomitant]
     Dosage: UNK
     Dates: start: 20020308, end: 20020310
  24. HEPARIN [Concomitant]
     Dosage: 58000 UNITS
     Route: 042
     Dates: start: 20020307
  25. HEPARIN [Concomitant]
     Dosage: 10,000 UNITS
     Dates: start: 20020307

REACTIONS (14)
  - HEPATIC FAILURE [None]
  - HYPOTENSION [None]
  - UNEVALUABLE EVENT [None]
  - FEAR [None]
  - RENAL INJURY [None]
  - INJURY [None]
  - STRESS [None]
  - ANXIETY [None]
  - ANHEDONIA [None]
  - RENAL FAILURE [None]
  - EMOTIONAL DISTRESS [None]
  - PSYCHIATRIC SYMPTOM [None]
  - RENAL IMPAIRMENT [None]
  - PAIN [None]
